FAERS Safety Report 23899064 (Version 1)
Quarter: 2024Q2

REPORT INFORMATION
  Report Type: Spontaneous
  Country: US (occurrence: US)
  Receive Date: 20240525
  Receipt Date: 20240525
  Transmission Date: 20240716
  Serious: No
  Sender: FDA-Public Use
  Company Number: US-TEVA-VS-3198438

PATIENT
  Age: 18 Month
  Weight: 10 kg

DRUGS (1)
  1. MEFLOQUINE HYDROCHLORIDE [Suspect]
     Active Substance: MEFLOQUINE HYDROCHLORIDE
     Indication: Malaria prophylaxis
     Dosage: 1/4TH A TABLET ONCE A WEEK
     Route: 065

REACTIONS (1)
  - Product prescribing issue [Unknown]
